FAERS Safety Report 10173330 (Version 1)
Quarter: 2014Q2

REPORT INFORMATION
  Report Type: Spontaneous
  Country: US (occurrence: None)
  Receive Date: 20140415
  Receipt Date: 20140415
  Transmission Date: 20141212
  Serious: Yes (Hospitalization)
  Sender: FDA-Public Use
  Company Number: ALL1-2014-00432

PATIENT
  Age: 12 Year
  Sex: Male
  Weight: 69.8 kg

DRUGS (7)
  1. VYVANSE [Suspect]
     Indication: ATTENTION DEFICIT/HYPERACTIVITY DISORDER
     Dosage: (MORNING)
     Route: 048
     Dates: start: 20130321, end: 20130924
  2. MENINGOCOCCAL VACCINE [Suspect]
     Indication: PROPHYLAXIS
     Dosage: ONE DOSE
     Route: 030
     Dates: start: 20130409, end: 20130409
  3. CATAPRES [Suspect]
     Indication: AFFECTIVE DISORDER
     Dosage: (NIGHTLY)
     Route: 048
     Dates: start: 20120301
  4. DEPAKOTE [Suspect]
     Indication: AFFECTIVE DISORDER
     Route: 048
     Dates: start: 20130621, end: 201309
  5. DESYREL [Suspect]
     Indication: AFFECTIVE DISORDER
     Dosage: (NIGHTLY)
     Route: 048
     Dates: start: 20130617
  6. PROZAC [Suspect]
     Indication: AFFECTIVE DISORDER
     Route: 048
     Dates: start: 20121108
  7. THORAZINE [Suspect]
     Indication: AFFECTIVE DISORDER
     Route: 048
     Dates: start: 20130326

REACTIONS (5)
  - Affective disorder [None]
  - Condition aggravated [None]
  - Aggression [None]
  - Agitation [None]
  - Drug prescribing error [None]
